FAERS Safety Report 6594719-4 (Version None)
Quarter: 2010Q1

REPORT INFORMATION
  Report Type: 
  Country: None (occurrence: None)
  Receive Date: 20100222
  Receipt Date: 20100208
  Transmission Date: 20100710
  Serious: Yes (Death)
  Sender: FDA-Public Use
  Company Number: US-MYLANLABS-2010S1001985

PATIENT
  Age: 25 Year
  Sex: Male

DRUGS (4)
  1. METHADONE [Interacting]
     Indication: DRUG ABUSE
     Route: 065
  2. SERTRALINE HCL [Suspect]
     Indication: OVERDOSE
     Route: 048
  3. LORAZEPAM [Concomitant]
     Route: 065
  4. BUSPIRONE HCL [Concomitant]
     Route: 065

REACTIONS (4)
  - BRAIN OEDEMA [None]
  - DRUG INTERACTION [None]
  - OVERDOSE [None]
  - PULMONARY OEDEMA [None]
